FAERS Safety Report 9708768 (Version 2)
Quarter: 2014Q1

REPORT INFORMATION
  Report Type: Spontaneous
  Country: DE (occurrence: DE)
  Receive Date: 20131125
  Receipt Date: 20140103
  Transmission Date: 20141002
  Serious: Yes (Death)
  Sender: FDA-Public Use
  Company Number: DE-GLAXOSMITHKLINE-D0081948A

PATIENT
  Sex: 0

DRUGS (1)
  1. REVOLADE [Suspect]
     Route: 048

REACTIONS (1)
  - Death [Fatal]
